FAERS Safety Report 7953527-X (Version None)
Quarter: 2011Q4

REPORT INFORMATION
  Report Type: 
  Country: None (occurrence: None)
  Receive Date: 20111202
  Receipt Date: 20111129
  Transmission Date: 20120403
  Serious: Yes (Other)
  Sender: FDA-Public Use
  Company Number: US-BAYER-2011-056953

PATIENT
  Age: 57 Year
  Sex: Male

DRUGS (6)
  1. LISINOPRIL [Concomitant]
     Dosage: DAILY DOSE 10 MG
  2. FAMOTIDINE [Concomitant]
  3. NADOLOL [Concomitant]
     Dosage: DAILY DOSE 20 MG
  4. LANTUS [Concomitant]
  5. NEXAVAR [Suspect]
     Indication: HEPATIC NEOPLASM MALIGNANT
     Dosage: 400 MG, BID
     Route: 048
     Dates: start: 20110408, end: 20110628
  6. SPIRONOLACTONE [Concomitant]
     Dosage: DAILY DOSE 20 MG

REACTIONS (2)
  - HEPATIC NEOPLASM MALIGNANT [None]
  - FATIGUE [None]
